FAERS Safety Report 9105705 (Version 2)
Quarter: 2013Q1

REPORT INFORMATION
  Report Type: Spontaneous
  Country: US (occurrence: US)
  Receive Date: 20130220
  Receipt Date: 20130318
  Transmission Date: 20140127
  Serious: No
  Sender: FDA-Public Use
  Company Number: US-PFIZER INC-2013062016

PATIENT
  Age: 72 Year
  Sex: Male

DRUGS (24)
  1. SUTENT [Suspect]
     Indication: RENAL CANCER
     Dosage: 50 MG, QD X 4 WKS Q 6 WKS
     Route: 048
     Dates: start: 20130131, end: 20130208
  2. FENTANYL [Suspect]
     Dosage: UNK
     Route: 062
     Dates: start: 20121207
  3. DILAUDID [Suspect]
     Indication: PAIN
     Dosage: 2 MG, Q 2 0 PRN
     Route: 048
     Dates: start: 20130108, end: 20130110
  4. ACIDOPHILUS [Concomitant]
  5. FLEXERIL [Concomitant]
  6. OXYCODONE HYDROCHLORIDE [Concomitant]
  7. VITAMIN B12 [Concomitant]
  8. ASPIRIN [Concomitant]
  9. LEVOTHYROXINE SODIUM [Concomitant]
  10. PANTOPRAZOLE SODIUM [Concomitant]
  11. ZOCOR [Concomitant]
  12. BENICAR [Concomitant]
  13. MAGNESIUM CARBONATE [Concomitant]
  14. SYNTHROID [Concomitant]
  15. CARDURA [Concomitant]
  16. MECLIZINE HYDROCHLORIDE [Concomitant]
  17. TRAMADOL HYDROCHLORIDE [Concomitant]
  18. NAPROXEN SODIUM [Concomitant]
  19. TYLENOL [Concomitant]
  20. FISH OIL [Concomitant]
  21. ONDANSETRON HYDROCHLORIDE [Concomitant]
  22. VICODIN [Concomitant]
  23. LYRICA [Concomitant]
     Indication: PAIN
     Dosage: 50 MG, 3X/DAY
     Route: 048
     Dates: start: 20130108
  24. CYMBALTA [Concomitant]
     Indication: PAIN
     Dosage: 60 MG, 1X/DAY
     Route: 048
     Dates: start: 20130125, end: 20130208

REACTIONS (7)
  - Hallucination [Recovered/Resolved]
  - Headache [Unknown]
  - Vertigo [Unknown]
  - Vomiting [Recovered/Resolved]
  - Feeling drunk [Recovered/Resolved]
  - Nausea [Recovered/Resolved]
  - Dizziness [Recovered/Resolved]
